FAERS Safety Report 24019420 (Version 2)
Quarter: 2024Q3

REPORT INFORMATION
  Report Type: Report from Study
  Country: IL (occurrence: IL)
  Receive Date: 20240627
  Receipt Date: 20240717
  Transmission Date: 20241017
  Serious: Yes (Hospitalization, Other)
  Sender: TAKEDA
  Company Number: IL-TAKEDA-2024TUS062914

PATIENT
  Sex: Male

DRUGS (4)
  1. VELAGLUCERASE ALFA [Suspect]
     Active Substance: VELAGLUCERASE ALFA
     Indication: Gaucher^s disease
     Dosage: 30 INTERNATIONAL UNIT/KILOGRAM, Q2WEEKS
     Route: 065
     Dates: start: 20100224
  2. AMBROXOL [Concomitant]
     Active Substance: AMBROXOL
     Indication: Gaucher^s disease
     Dosage: 600 MILLIGRAM, QD
     Route: 048
     Dates: start: 201905, end: 20201216
  3. NEOBLOC [Concomitant]
     Indication: Atrial fibrillation
     Dosage: 75 MILLIGRAM, BID
     Route: 048
     Dates: start: 20220405, end: 20220408
  4. SIMVAXON [Concomitant]
     Indication: Atrial fibrillation
     Dosage: 20 MILLIGRAM, QD
     Route: 048
     Dates: start: 20220405

REACTIONS (1)
  - Rectal haemorrhage [Recovered/Resolved]

NARRATIVE: CASE EVENT DATE: 20240623
